FAERS Safety Report 4696884-2 (Version None)
Quarter: 2005Q2

REPORT INFORMATION
  Report Type: 
  Country: None (occurrence: None)
  Receive Date: 20050622
  Receipt Date: 20050331
  Transmission Date: 20051028
  Serious: Yes (Other)
  Sender: FDA-Public Use
  Company Number: PHNR2005AU00699

PATIENT
  Sex: Female

DRUGS (3)
  1. ESTRADERM TTS 25 [Suspect]
  2. TENORMIN [Concomitant]
  3. NATRILIX [Concomitant]

REACTIONS (4)
  - BLADDER REPAIR [None]
  - HYSTERECTOMY [None]
  - INTESTINAL OPERATION [None]
  - UTERINE PROLAPSE [None]
